FAERS Safety Report 7062619-1 (Version None)
Quarter: 2010Q4

REPORT INFORMATION
  Report Type: 
  Country: None (occurrence: None)
  Receive Date: 20101026
  Receipt Date: 20091201
  Transmission Date: 20110411
  Serious: No
  Sender: FDA-Public Use
  Company Number: US-PFIZER INC-2009283603

PATIENT
  Sex: Female
  Weight: 72.6 kg

DRUGS (2)
  1. LIPITOR [Suspect]
     Indication: BLOOD CHOLESTEROL INCREASED
     Dosage: 10 MG, 1X/DAY
     Dates: start: 20090924, end: 20091008
  2. ACTONEL [Concomitant]
     Indication: OSTEOPENIA
     Dosage: 150 MG, MONTHLY
     Dates: start: 20091001

REACTIONS (1)
  - BACK PAIN [None]
